FAERS Safety Report 8760982 (Version 1)
Quarter: 2012Q4

REPORT INFORMATION
  Report Type: 
  Country: FR (occurrence: FR)
  Receive Date: 20120830
  Receipt Date: 20120830
  Transmission Date: 20130627
  Serious: Yes (Hospitalization)
  Sender: FDA-Public Use
  Company Number: FR-SANOFI-AVENTIS-2012SA060318

PATIENT
  Age: 67 Year
  Sex: Male
  Weight: 72 kg

DRUGS (12)
  1. DETICENE [Suspect]
     Indication: MALIGNANT MELANOMA STAGE IV
     Route: 042
     Dates: start: 19980713, end: 20020219
  2. AMAREL [Suspect]
     Indication: TYPE 2 DIABETES MELLITUS
     Route: 048
  3. MUPHORAN [Suspect]
     Indication: DRUG USE FOR UNKNOWN INDICATION
     Dosage: 9 cycle - cumulative 1,650 mg
     Route: 042
     Dates: start: 19990420, end: 19991213
  4. GLUCOPHAGE [Suspect]
     Indication: DRUG USE FOR UNKNOWN INDICATION
     Dosage: strength: 850 mg
     Route: 048
  5. EFFEXOR [Suspect]
     Indication: DRUG USE FOR UNKNOWN INDICATION
     Dosage: strength: 50mg
     Route: 048
  6. DAONIL [Concomitant]
  7. INSULIN HUMAN INJECTION, ISOPHANE/POTASSIUM BICARBONATE/GLUCOSE/TRIACETIN/SODIUM BICARBONATE/FATTY A [Concomitant]
  8. FENOFIBRATE [Concomitant]
  9. ASPEGIC [Concomitant]
     Dosage: strength: 250 mg
  10. MYOLASTAN [Concomitant]
  11. RIVOTRIL [Concomitant]
  12. DEPAKOTE [Concomitant]

REACTIONS (15)
  - Poverty of speech [Recovered/Resolved]
  - Aphasia [Recovered/Resolved]
  - Disorientation [Recovered/Resolved]
  - Headache [Recovered/Resolved]
  - Gamma-glutamyltransferase increased [None]
  - Neuropathy peripheral [None]
  - Confusional state [None]
  - Herpes zoster [None]
  - Aphasia [None]
  - Memory impairment [None]
  - Ischaemic stroke [None]
  - Alanine aminotransferase increased [None]
  - White blood cell count decreased [None]
  - Rheumatoid factor positive [None]
  - Epilepsy [None]
